FAERS Safety Report 13123081 (Version 4)
Quarter: 2019Q3

REPORT INFORMATION
  Report Type: Spontaneous
  Country: US (occurrence: US)
  Receive Date: 20170117
  Receipt Date: 20190703
  Transmission Date: 20191004
  Serious: Yes (Other)
  Sender: FDA-Public Use
  Company Number: US-PFIZER INC-2016531243

PATIENT
  Age: 82 Year
  Sex: Male
  Weight: 84.37 kg

DRUGS (2)
  1. LYRICA [Suspect]
     Active Substance: PREGABALIN
     Indication: NEUROPATHY PERIPHERAL
  2. LYRICA [Suspect]
     Active Substance: PREGABALIN
     Indication: NEURALGIA
     Dosage: 150 MG, 2X/DAY
     Route: 048

REACTIONS (4)
  - Dyspnoea [Recovering/Resolving]
  - Abdominal distension [Unknown]
  - Weight increased [Not Recovered/Not Resolved]
  - Drug dependence [Unknown]
